FAERS Safety Report 5817240-7 (Version None)
Quarter: 2008Q3

REPORT INFORMATION
  Report Type: 
  Country: None (occurrence: None)
  Receive Date: 20080722
  Receipt Date: 20080709
  Transmission Date: 20090109
  Serious: Yes (Hospitalization)
  Sender: FDA-Public Use
  Company Number: GB-AMGEN-UK293825

PATIENT
  Sex: Female
  Weight: 56.6 kg

DRUGS (3)
  1. PANITUMUMAB [Suspect]
     Indication: COLORECTAL CANCER
     Route: 042
     Dates: start: 20080605
  2. IRINOTECAN HCL [Suspect]
     Indication: COLORECTAL CANCER
     Route: 065
     Dates: start: 20080605
  3. ACYCLOVIR [Concomitant]
     Route: 065

REACTIONS (2)
  - DIARRHOEA [None]
  - NEUTROPENIC SEPSIS [None]
